FAERS Safety Report 9276667 (Version 1)
Quarter: 2013Q2

REPORT INFORMATION
  Report Type: Report from Study
  Country: CA (occurrence: CA)
  Receive Date: 20130507
  Receipt Date: 20130507
  Transmission Date: 20140414
  Serious: Yes (Other)
  Sender: FDA-Public Use
  Company Number: PHHO2013CA003825

PATIENT
  Age: 76 Year
  Sex: Male
  Weight: 75 kg

DRUGS (19)
  1. BLINDED ACZ885 [Suspect]
     Indication: CARDIOVASCULAR EVENT PROPHYLAXIS
     Dosage: CODE NOT BROKEN
     Route: 058
     Dates: start: 20130103, end: 20130103
  2. BLINDED NO TREATMENT RECEIVED [Suspect]
     Indication: CARDIOVASCULAR EVENT PROPHYLAXIS
     Dosage: CODE NOT BROKEN
     Route: 058
     Dates: start: 20130103, end: 20130103
  3. BLINDED PLACEBO [Suspect]
     Indication: CARDIOVASCULAR EVENT PROPHYLAXIS
     Dosage: CODE NOT BROKEN
     Route: 058
     Dates: start: 20130103, end: 20130103
  4. BLINDED ACZ885 [Suspect]
     Dosage: CODE NOT BROKEN
     Route: 058
     Dates: start: 20130129, end: 20130404
  5. BLINDED NO TREATMENT RECEIVED [Suspect]
     Dosage: CODE NOT BROKEN
     Route: 058
     Dates: start: 20130129, end: 20130404
  6. BLINDED PLACEBO [Suspect]
     Dosage: CODE NOT BROKEN
     Route: 058
     Dates: start: 20130129, end: 20130404
  7. ATORVASTATIN [Concomitant]
     Indication: DYSLIPIDAEMIA
     Dosage: 40 MG, QD
     Route: 048
     Dates: start: 20101229
  8. PLAVIX [Concomitant]
     Indication: MYOCARDIAL INFARCTION
     Dosage: 75 MG, QD
     Route: 048
     Dates: start: 20090425
  9. NITROSPRAY [Concomitant]
     Indication: CORONARY ARTERY DISEASE
     Dosage: 0.4 MG, SI PRN
     Dates: start: 20090426
  10. METOPROLOL [Concomitant]
     Indication: HYPERTENSION
     Dosage: 25 MG, BID
     Route: 048
     Dates: start: 20090426
  11. CALCIUM [Concomitant]
     Indication: OSTEOPOROSIS PROPHYLAXIS
     Dosage: 500 MG, BID
     Route: 048
     Dates: start: 20090108
  12. VITAMIN D [Concomitant]
     Indication: OSTEOPOROSIS PROPHYLAXIS
     Dosage: 400 MG, BID
     Route: 048
     Dates: start: 20090108
  13. RISEDRONATE [Concomitant]
     Indication: OSTEOPOROSIS
     Dosage: 35 MG, QW
     Route: 048
     Dates: start: 20090108, end: 20130124
  14. PANTOPRAZOLE [Concomitant]
     Dosage: 40 MG, QD
     Route: 048
     Dates: start: 20090531, end: 20130124
  15. ASAPHEN [Concomitant]
     Indication: CORONARY ARTERY DISEASE
     Dosage: 80 MG, QD
     Route: 048
     Dates: start: 20090512, end: 20130124
  16. RAMIPRIL [Concomitant]
     Indication: HYPERTENSION
     Dosage: 2.5 MG, QD
     Route: 048
     Dates: start: 20090426, end: 20130124
  17. AVAMYS [Concomitant]
     Indication: SEASONAL ALLERGY
     Dosage: 27.5 UG/DOSE, PRN
  18. TESTOSTERONE [Concomitant]
     Indication: OSTEOPOROSIS PROPHYLAXIS
     Dosage: 10 CC, IM/MOUTH
     Dates: start: 20081027, end: 20130124
  19. QUININE [Concomitant]
     Indication: MUSCLE SPASMS
     Dosage: 200 MG, QD
     Route: 048
     Dates: start: 20111009, end: 20130124

REACTIONS (1)
  - Basal cell carcinoma [Not Recovered/Not Resolved]
